FAERS Safety Report 5044873-0 (Version None)
Quarter: 2006Q3

REPORT INFORMATION
  Report Type: 
  Country: None (occurrence: None)
  Receive Date: 20060707
  Receipt Date: 20060626
  Transmission Date: 20061208
  Serious: Yes (Other)
  Sender: FDA-Public Use
  Company Number: PHRM2006FR01985

PATIENT
  Age: 30 Year
  Sex: Female

DRUGS (2)
  1. SYNTOCINON [Suspect]
     Indication: TOCOLYSIS
     Dosage: 1 IU, ONCE/SINGLE
     Dates: start: 20060614, end: 20060614
  2. SYNTOCINON [Suspect]
     Dosage: UNK, UNK
     Dates: start: 20060614, end: 20060614

REACTIONS (5)
  - BRADYCARDIA FOETAL [None]
  - CAESAREAN SECTION [None]
  - DRUG EXPOSURE DURING PREGNANCY [None]
  - PALPITATIONS [None]
  - TACHYCARDIA [None]
